FAERS Safety Report 6331108-1 (Version None)
Quarter: 2009Q3

REPORT INFORMATION
  Report Type: 
  Country: None (occurrence: None)
  Receive Date: 20090827
  Receipt Date: 20090820
  Transmission Date: 20100115
  Serious: Yes (Hospitalization)
  Sender: FDA-Public Use
  Company Number: GB-ROCHE-648574

PATIENT
  Sex: Female

DRUGS (1)
  1. CAPECITABINE [Suspect]
     Indication: COLON CANCER
     Dosage: AMOUNT AND FREQUENCY AS PER PROTOCOL: 1250 MG/M2 TWICE DAILY FOR 14 DAYS
     Route: 048
     Dates: start: 20090721, end: 20090731

REACTIONS (1)
  - HEMIPARESIS [None]
